FAERS Safety Report 17045252 (Version 2)
Quarter: 2020Q4

REPORT INFORMATION
  Report Type: Report from Study
  Country: AT (occurrence: AT)
  Receive Date: 20191118
  Receipt Date: 20201215
  Transmission Date: 20210113
  Serious: Yes (Hospitalization)
  Sender: FDA-Public Use
  Company Number: AT-MYLANLABS-2019M1109789

PATIENT
  Age: 40 Year
  Sex: Female
  Weight: 60 kg

DRUGS (14)
  1. VENLAFAXINE [Concomitant]
     Active Substance: VENLAFAXINE HYDROCHLORIDE
     Indication: NIGHT SWEATS
     Dosage: UNK
     Route: 065
     Dates: start: 20190228
  2. PERTUZUMAB. [Suspect]
     Active Substance: PERTUZUMAB
     Indication: BREAST CANCER
     Dosage: 420 MILLIGRAM, Q3W
     Route: 042
     Dates: start: 201811
  3. FORTECORTIN                        /00016001/ [Concomitant]
     Active Substance: DEXAMETHASONE
     Dosage: UNK
     Route: 065
     Dates: start: 20170330
  4. PARKEMED [Concomitant]
     Active Substance: MEFENAMIC ACID
     Indication: DENTAL FISTULA
     Dosage: UNK
     Route: 065
     Dates: start: 20181113, end: 20181120
  5. PARKEMED [Concomitant]
     Active Substance: MEFENAMIC ACID
     Dosage: UNK
     Dates: start: 20170315
  6. EMEND [Concomitant]
     Active Substance: APREPITANT
     Dosage: ONGOING = CHECKED
     Route: 065
     Dates: start: 20161115
  7. MIRANAX                            /00256201/ [Concomitant]
     Dosage: UNK
     Route: 065
     Dates: start: 20161115
  8. MEXALEN [Concomitant]
     Active Substance: ACETAMINOPHEN
     Indication: METASTASES TO CENTRAL NERVOUS SYSTEM
     Dosage: UNK
     Route: 065
     Dates: start: 20170609
  9. LETROZOLE. [Suspect]
     Active Substance: LETROZOLE
     Indication: BREAST CANCER
     Dosage: 2.5 MILLIGRAM, QD
     Route: 048
     Dates: start: 20180426
  10. TRASTUZUMAB. [Suspect]
     Active Substance: TRASTUZUMAB
     Indication: HER2 POSITIVE BREAST CANCER
     Dosage: 600 MILLIGRAM, Q3W
     Route: 041
     Dates: start: 20180503
  11. TRASTUZUMAB. [Suspect]
     Active Substance: TRASTUZUMAB
     Dosage: 3.6 MILLIGRAM/KILOGRAM, 4 WEEK
     Route: 042
     Dates: start: 20161114
  12. ZOFRAN [Concomitant]
     Active Substance: ONDANSETRON HYDROCHLORIDE
     Dosage: UNK
     Route: 065
     Dates: start: 20161115
  13. PERTUZUMAB. [Suspect]
     Active Substance: PERTUZUMAB
     Indication: HER2 POSITIVE BREAST CANCER
     Dosage: 840 MILLIGRAM, Q3W, MOST RECENT DOSE 22-NOV-2018
     Route: 042
     Dates: start: 20181122
  14. XGEVA [Suspect]
     Active Substance: DENOSUMAB
     Indication: HER2 POSITIVE BREAST CANCER
     Dosage: 120 MILLIGRAM, MOST RECENT DOSE 19/MAR/2019
     Route: 058
     Dates: start: 201611

REACTIONS (5)
  - Spinal pain [Recovered/Resolved]
  - Night sweats [Recovered/Resolved]
  - Vision blurred [Recovered/Resolved]
  - Chills [Recovered/Resolved]
  - Dental fistula [Recovered/Resolved]

NARRATIVE: CASE EVENT DATE: 20181112
